FAERS Safety Report 5034580-2 (Version None)
Quarter: 2006Q2

REPORT INFORMATION
  Report Type: 
  Country: None (occurrence: None)
  Receive Date: 20060626
  Receipt Date: 20060619
  Transmission Date: 20061013
  Serious: Yes (Other)
  Sender: FDA-Public Use
  Company Number: US-BOEHRINGER INGELHEIM PHARMACEUTICALS, INC.-2006-BP-07215PF

PATIENT
  Sex: Male

DRUGS (18)
  1. SPIRIVA [Suspect]
     Indication: CHRONIC OBSTRUCTIVE PULMONARY DISEASE
     Route: 055
     Dates: start: 20051213
  2. ALBUTEROL [Concomitant]
     Indication: CHRONIC OBSTRUCTIVE PULMONARY DISEASE
     Dates: start: 20050930
  3. ATIVAN [Concomitant]
     Indication: RESTLESS LEGS SYNDROME
     Dates: start: 20051018
  4. BACTRIM DS [Concomitant]
     Indication: HIV INFECTION
     Dates: start: 20051004
  5. DURAGESIC-100 [Concomitant]
     Indication: PAIN
  6. FLEXERIL [Concomitant]
     Indication: PAIN
     Dates: start: 20030101
  7. IBUPROFEN [Concomitant]
     Indication: ARTHRITIS
     Dates: start: 20051018
  8. LYRICA CV [Concomitant]
     Indication: NEUROPATHY
     Dates: start: 20030330
  9. NASONEX [Concomitant]
     Indication: CHRONIC OBSTRUCTIVE PULMONARY DISEASE
     Dates: start: 20051018
  10. NIASPAN [Concomitant]
     Indication: BLOOD CHOLESTEROL
     Dates: start: 20040101
  11. NIZORAL [Concomitant]
     Indication: HIV INFECTION
     Dates: start: 20050620
  12. NEURONTIN [Concomitant]
     Indication: NEUROPATHY
     Dates: start: 20060104
  13. PERCOCET [Concomitant]
     Indication: PAIN
     Dates: start: 20060509
  14. PRAVACHOL [Concomitant]
     Indication: BLOOD CHOLESTEROL
     Dates: start: 20051002
  15. SUSTIVA [Concomitant]
     Indication: HIV INFECTION
     Dates: start: 20051004
  16. TRUVADA [Concomitant]
     Indication: HIV INFECTION
     Dates: start: 20051004
  17. VICODON ES [Concomitant]
     Indication: PAIN
     Dates: start: 20060104
  18. ZIAGEN [Concomitant]
     Indication: HIV INFECTION
     Dates: start: 20051004

REACTIONS (2)
  - OSTEONECROSIS [None]
  - RECTAL CANCER [None]
